FAERS Safety Report 17041835 (Version 3)
Quarter: 2019Q4

REPORT INFORMATION
  Report Type: Spontaneous
  Country: JP (occurrence: JP)
  Receive Date: 20191118
  Receipt Date: 20191219
  Transmission Date: 20200122
  Serious: Yes (Hospitalization, Other)
  Sender: FDA-Public Use
  Company Number: JP-AMGEN-JPNSP2019190239

PATIENT
  Age: 6 Decade
  Sex: Female

DRUGS (19)
  1. DOXORUBICIN HYDROCHLORIDE. [Suspect]
     Active Substance: DOXORUBICIN HYDROCHLORIDE
     Dosage: 42 MILLIGRAM
     Route: 041
     Dates: start: 20191127, end: 20191127
  2. EXAL [VINBLASTINE SULFATE] [Suspect]
     Active Substance: VINBLASTINE SULFATE
     Dosage: 10 MILLIGRAM
     Route: 040
     Dates: start: 20191127, end: 20191127
  3. G-LASTA [Suspect]
     Active Substance: PEGFILGRASTIM
     Dosage: 3.6 MILLIGRAM
     Route: 058
     Dates: start: 20191128, end: 20191128
  4. EXAL [VINBLASTINE SULFATE] [Suspect]
     Active Substance: VINBLASTINE SULFATE
     Indication: HODGKIN^S DISEASE
     Dosage: 10 MILLIGRAM
     Route: 040
     Dates: start: 20191002, end: 20191002
  5. G-LASTA [Suspect]
     Active Substance: PEGFILGRASTIM
     Dosage: 3.6 MILLIGRAM
     Route: 058
     Dates: start: 20191114, end: 20191114
  6. DOXORUBICIN HYDROCHLORIDE. [Suspect]
     Active Substance: DOXORUBICIN HYDROCHLORIDE
     Dosage: 42 MILLIGRAM
     Route: 041
     Dates: start: 20191113, end: 20191113
  7. ADCETRIS [Suspect]
     Active Substance: BRENTUXIMAB VEDOTIN
     Dosage: 78 MILLIGRAM
     Route: 041
     Dates: start: 20191016, end: 20191016
  8. DACARBAZINE. [Suspect]
     Active Substance: DACARBAZINE
     Dosage: 630 MILLIGRAM
     Route: 041
     Dates: start: 20191113, end: 20191113
  9. ADCETRIS [Suspect]
     Active Substance: BRENTUXIMAB VEDOTIN
     Indication: HODGKIN^S DISEASE
     Dosage: 78 MILLIGRAM
     Route: 041
     Dates: start: 20191002, end: 20191002
  10. DACARBAZINE. [Suspect]
     Active Substance: DACARBAZINE
     Dosage: 630 MILLIGRAM
     Route: 041
     Dates: start: 20191016, end: 20191016
  11. DACARBAZINE. [Suspect]
     Active Substance: DACARBAZINE
     Dosage: 630 MILLIGRAM
     Route: 041
     Dates: start: 20191127, end: 20191127
  12. DOXORUBICIN HYDROCHLORIDE. [Suspect]
     Active Substance: DOXORUBICIN HYDROCHLORIDE
     Dosage: 42 MILLIGRAM
     Route: 041
     Dates: start: 20191016, end: 20191016
  13. DOXORUBICIN HYDROCHLORIDE. [Suspect]
     Active Substance: DOXORUBICIN HYDROCHLORIDE
     Indication: HODGKIN^S DISEASE
     Dosage: 42 MILLIGRAM
     Route: 041
     Dates: start: 20191002, end: 20191002
  14. EXAL [VINBLASTINE SULFATE] [Suspect]
     Active Substance: VINBLASTINE SULFATE
     Dosage: 10 MILLIGRAM
     Route: 040
     Dates: start: 20191016, end: 20191016
  15. ADCETRIS [Suspect]
     Active Substance: BRENTUXIMAB VEDOTIN
     Dosage: 78 MILLIGRAM
     Route: 041
     Dates: start: 20191127, end: 20191127
  16. DACARBAZINE. [Suspect]
     Active Substance: DACARBAZINE
     Indication: HODGKIN^S DISEASE
     Dosage: 630 MILLIGRAM
     Route: 041
     Dates: start: 20191002, end: 20191002
  17. G-LASTA [Suspect]
     Active Substance: PEGFILGRASTIM
     Indication: COLONY STIMULATING FACTOR THERAPY
     Dosage: 3.6 MILLIGRAM
     Route: 058
     Dates: start: 20191003, end: 20191003
  18. EXAL [VINBLASTINE SULFATE] [Suspect]
     Active Substance: VINBLASTINE SULFATE
     Dosage: 10 MILLIGRAM
     Route: 040
     Dates: start: 20191113, end: 20191113
  19. ADCETRIS [Suspect]
     Active Substance: BRENTUXIMAB VEDOTIN
     Dosage: 78 MILLIGRAM
     Route: 041
     Dates: start: 20191113, end: 20191113

REACTIONS (3)
  - Febrile neutropenia [Recovered/Resolved]
  - Chemotherapy [Unknown]
  - Bone pain [Recovered/Resolved]

NARRATIVE: CASE EVENT DATE: 201910
